FAERS Safety Report 8043198 (Version 2)
Quarter: 2012Q4

REPORT INFORMATION
  Report Type: 
  Country: US (occurrence: US)
  Receive Date: 20110719
  Receipt Date: 20121121
  Transmission Date: 20130627
  Serious: Yes (Hospitalization, Other)
  Sender: FDA-Public Use
  Company Number: US-ELI_LILLY_AND_COMPANY-US201107002762

PATIENT
  Sex: Male
  Weight: 90.7 kg

DRUGS (13)
  1. BYETTA [Suspect]
     Indication: TYPE 2 DIABETES MELLITUS
     Dosage: 5 ug, bid
     Route: 058
     Dates: start: 200807, end: 201104
  2. BYETTA [Suspect]
     Dosage: 5 ug, bid
     Route: 058
     Dates: start: 201105
  3. BYETTA [Suspect]
     Dosage: 10 ug, bid
     Route: 058
  4. LANTUS [Concomitant]
     Indication: TYPE 2 DIABETES MELLITUS
  5. GLYBURIDE [Concomitant]
     Indication: TYPE 2 DIABETES MELLITUS
     Dosage: 5 mg, qd
     Route: 048
  6. ASPIRIN [Concomitant]
     Indication: CARDIAC DISORDER
     Dosage: 162 mg, qd
     Route: 048
  7. LISINOPRIL [Concomitant]
     Indication: PROPHYLAXIS
     Dosage: 20 mg, qd
     Route: 048
  8. METOPROLOL TARTRATE [Concomitant]
     Indication: HYPERTENSION
     Dosage: 50 mg, qd
     Route: 048
  9. NITROSTAT [Concomitant]
     Indication: CARDIAC DISORDER
     Dosage: UNK, prn
     Route: 060
  10. NIACIN [Concomitant]
     Indication: BLOOD CHOLESTEROL INCREASED
     Dosage: UNK, qd
     Route: 048
  11. SIMVASTATIN [Concomitant]
     Indication: BLOOD CHOLESTEROL INCREASED
     Dosage: 80 mg, qd
     Route: 048
  12. PLAVIX [Concomitant]
     Indication: CARDIAC DISORDER
     Dosage: 75 mg, qd
     Route: 048
  13. TRIAMTERENE AND HYDROCHLOROTHIAZIDE [Concomitant]
     Indication: HYPERTENSION
     Dosage: 1 DF, qd
     Route: 048

REACTIONS (7)
  - Arterial occlusive disease [Unknown]
  - Myocardial infarction [Recovered/Resolved]
  - Coronary artery restenosis [Recovered/Resolved]
  - Feeling abnormal [Recovered/Resolved]
  - Cardiac disorder [Unknown]
  - Arterial disorder [Unknown]
  - Weight decreased [Unknown]
